FAERS Safety Report 14634001 (Version 2)
Quarter: 2018Q2

REPORT INFORMATION
  Report Type: Spontaneous
  Country: CN (occurrence: CN)
  Receive Date: 20180314
  Receipt Date: 20180404
  Transmission Date: 20180711
  Serious: Yes (Hospitalization)
  Sender: FDA-Public Use
  Company Number: CN-ROCHE-2083127

PATIENT
  Age: 69 Year
  Sex: Female
  Weight: 53 kg

DRUGS (6)
  1. AVASTIN [Suspect]
     Active Substance: BEVACIZUMAB
     Indication: COLON CANCER
     Route: 041
     Dates: start: 20171231, end: 20171231
  2. FLUOROURACIL. [Suspect]
     Active Substance: FLUOROURACIL
     Indication: COLON CANCER
     Route: 042
     Dates: start: 20171231, end: 20180102
  3. FLUOROURACIL. [Suspect]
     Active Substance: FLUOROURACIL
     Route: 042
     Dates: start: 20180116, end: 20180118
  4. IRINOTECAN HYDROCHLORIDE. [Suspect]
     Active Substance: IRINOTECAN HYDROCHLORIDE
     Route: 041
     Dates: start: 20180116, end: 20180116
  5. AVASTIN [Suspect]
     Active Substance: BEVACIZUMAB
     Route: 041
     Dates: start: 20180116, end: 20180116
  6. IRINOTECAN HYDROCHLORIDE. [Suspect]
     Active Substance: IRINOTECAN HYDROCHLORIDE
     Indication: COLON CANCER
     Route: 041
     Dates: start: 20171231, end: 20171231

REACTIONS (10)
  - Haemoglobin decreased [Recovering/Resolving]
  - Hyponatraemia [Recovering/Resolving]
  - Blood potassium decreased [Recovering/Resolving]
  - Neutrophil count decreased [Recovering/Resolving]
  - Hypocalcaemia [Recovering/Resolving]
  - Hyperpyrexia [Recovering/Resolving]
  - Diarrhoea [Recovering/Resolving]
  - Hypochloraemia [Recovering/Resolving]
  - White blood cell count decreased [Recovering/Resolving]
  - Platelet count decreased [Recovering/Resolving]

NARRATIVE: CASE EVENT DATE: 20180114
